FAERS Safety Report 8517443-7 (Version None)
Quarter: 2012Q3

REPORT INFORMATION
  Report Type: 
  Country: None (occurrence: None)
  Receive Date: 20120718
  Receipt Date: 20120711
  Transmission Date: 20120928
  Serious: Yes (Disabling)
  Sender: FDA-Public Use
  Company Number: US-ROCHE-1082047

PATIENT
  Sex: Female

DRUGS (9)
  1. AVASTIN [Suspect]
     Indication: MULTIPLE MYELOMA
     Dosage: 795
     Route: 042
     Dates: start: 20100630
  2. PRILOSEC [Concomitant]
     Route: 048
  3. CITALOPRAM HYDROBROMIDE [Concomitant]
     Indication: DEPRESSION
     Route: 048
  4. LOSARTAN POTASSIUM [Concomitant]
     Route: 048
  5. DEXAMETHASONE [Concomitant]
     Indication: BRAIN OEDEMA
     Route: 048
  6. TOPIRAMATE [Concomitant]
     Indication: CONVULSION
     Route: 048
  7. SYNTHROID [Concomitant]
     Route: 048
  8. AVASTIN [Suspect]
     Dosage: 745
     Route: 042
     Dates: start: 20110720, end: 20120502
  9. METOPROLOL SUCCINATE [Concomitant]
     Indication: HYPERTENSION

REACTIONS (2)
  - FEELING ABNORMAL [None]
  - COGNITIVE DISORDER [None]
